FAERS Safety Report 7772411-8 (Version None)
Quarter: 2011Q3

REPORT INFORMATION
  Report Type: 
  Country: None (occurrence: None)
  Receive Date: 20110922
  Receipt Date: 20100607
  Transmission Date: 20111222
  Serious: No
  Sender: FDA-Public Use
  Company Number: US-ASTRAZENECA-2010SE26430

PATIENT
  Age: 13549 Day
  Sex: Male
  Weight: 106.6 kg

DRUGS (2)
  1. SEROQUEL XR [Suspect]
     Indication: INSOMNIA
     Route: 048
     Dates: start: 20100602, end: 20100605
  2. KLOMIPINE [Concomitant]

REACTIONS (8)
  - INSOMNIA [None]
  - SEDATION [None]
  - NIGHTMARE [None]
  - FEELING ABNORMAL [None]
  - DRY MOUTH [None]
  - HEADACHE [None]
  - SLUGGISHNESS [None]
  - SOMNOLENCE [None]
